FAERS Safety Report 25262510 (Version 1)
Quarter: 2025Q2

REPORT INFORMATION
  Report Type: Spontaneous
  Country: US (occurrence: US)
  Receive Date: 20250502
  Receipt Date: 20250502
  Transmission Date: 20250717
  Serious: Yes (Hospitalization, Other)
  Sender: DR REDDYS
  Company Number: US-DRL-USA-USA/2025/04/006186

PATIENT
  Age: 46 Year
  Sex: Female

DRUGS (7)
  1. CYCLOSPORINE [Suspect]
     Active Substance: CYCLOSPORINE
     Indication: Chronic myelomonocytic leukaemia
     Dosage: 200 MG TWICE DAILY
  2. HUMAN IMMUNOGLOBULIN G [Concomitant]
     Active Substance: HUMAN IMMUNOGLOBULIN G
     Indication: Chronic myelomonocytic leukaemia
     Route: 042
  3. RITUXIMAB [Concomitant]
     Active Substance: RITUXIMAB
     Indication: Chronic myelomonocytic leukaemia
     Route: 042
  4. METHYLPREDNISOLONE [Concomitant]
     Active Substance: METHYLPREDNISOLONE
     Indication: Chronic myelomonocytic leukaemia
  5. CLADRIBINE [Concomitant]
     Active Substance: CLADRIBINE
     Indication: Chronic myelomonocytic leukaemia
  6. CYTARABINE [Concomitant]
     Active Substance: CYTARABINE
     Indication: Chronic myelomonocytic leukaemia
     Dosage: 20 MG TWICE DAILY FOR 10 DAYS
     Route: 058
  7. GILTERITINIB [Concomitant]
     Active Substance: GILTERITINIB
     Indication: Chronic myelomonocytic leukaemia
     Dosage: 80 MG DAILY FOR 28 DAYS

REACTIONS (2)
  - Hepatic enzyme increased [Unknown]
  - Product use in unapproved indication [Unknown]
